FAERS Safety Report 14629452 (Version 1)
Quarter: 2018Q1

REPORT INFORMATION
  Report Type: Spontaneous
  Country: US (occurrence: US)
  Receive Date: 20180312
  Receipt Date: 20180312
  Transmission Date: 20180509
  Serious: Yes (Other)
  Sender: FDA-Public Use
  Company Number: None

PATIENT
  Age: 30 Year
  Sex: Female

DRUGS (1)
  1. CHLORDIAZEPOXIDE. [Suspect]
     Active Substance: CHLORDIAZEPOXIDE
     Indication: SEIZURE
     Route: 048
     Dates: start: 20180307, end: 20180312

REACTIONS (6)
  - Balance disorder [None]
  - Amnesia [None]
  - Dysarthria [None]
  - Incoherent [None]
  - Paraesthesia oral [None]
  - Dry mouth [None]

NARRATIVE: CASE EVENT DATE: 20180307
